FAERS Safety Report 11203813 (Version 1)
Quarter: 2015Q2

REPORT INFORMATION
  Report Type: Spontaneous
  Country: IT (occurrence: NL)
  Receive Date: 20150619
  Receipt Date: 20150619
  Transmission Date: 20150821
  Serious: Yes (Other)
  Sender: FDA-Public Use
  Company Number: NL-FRI-1000077400

PATIENT
  Age: 76 Year
  Sex: Female
  Weight: 84 kg

DRUGS (10)
  1. MONUROL [Suspect]
     Active Substance: FOSFOMYCIN TROMETHAMINE
     Indication: CYSTITIS
     Dosage: 3 G
     Route: 048
     Dates: start: 20150507, end: 20150507
  2. HYDROCHLOROTHIAZIDE. [Concomitant]
     Active Substance: HYDROCHLOROTHIAZIDE
  3. METFORMIN HCL [Concomitant]
     Active Substance: METFORMIN HYDROCHLORIDE
  4. SPIRIVA [Concomitant]
     Active Substance: TIOTROPIUM BROMIDE MONOHYDRATE
  5. FLUCONAZOL SANDOZ [Suspect]
     Active Substance: FLUCONAZOLE
     Indication: FUNGAL INFECTION
     Dosage: 450 MG
     Route: 048
     Dates: start: 20150507, end: 20150509
  6. HYDROCORTISONE. [Concomitant]
     Active Substance: HYDROCORTISONE
     Dates: start: 20150428
  7. SELOKEEN [Concomitant]
     Active Substance: METOPROLOL
  8. DUSPATAL [Concomitant]
     Active Substance: MEBEVERINE
     Dates: start: 20150428, end: 20150513
  9. SELEKTINE [Concomitant]
     Active Substance: PRAVASTATIN SODIUM
  10. DIAZEPAM. [Concomitant]
     Active Substance: DIAZEPAM

REACTIONS (2)
  - Drug interaction [Recovered/Resolved]
  - Hepatitis acute [Recovered/Resolved]

NARRATIVE: CASE EVENT DATE: 20150509
